FAERS Safety Report 13200054 (Version 2)
Quarter: 2017Q1

REPORT INFORMATION
  Report Type: Spontaneous
  Country: JP (occurrence: JP)
  Receive Date: 20170208
  Receipt Date: 20170302
  Transmission Date: 20170428
  Serious: No
  Sender: FDA-Public Use
  Company Number: JP-ELI_LILLY_AND_COMPANY-JP201702002018

PATIENT
  Age: 86 Year
  Sex: Female

DRUGS (8)
  1. ZYPREXA [Suspect]
     Active Substance: OLANZAPINE
     Dosage: 5 MG, QD
     Route: 048
     Dates: start: 20100609
  2. AMLODIPINE [Concomitant]
     Active Substance: AMLODIPINE BESYLATE
     Indication: HYPERTENSION
     Dosage: UNK
     Route: 048
     Dates: start: 20130710, end: 20170207
  3. MAGNESIUM OXIDE. [Concomitant]
     Active Substance: MAGNESIUM OXIDE
     Dosage: 0.5 G, QD
     Route: 048
  4. ZYPREXA [Suspect]
     Active Substance: OLANZAPINE
     Indication: SCHIZOPHRENIA
     Dosage: 1.25 MG, QD
     Route: 048
     Dates: start: 20100203, end: 20100601
  5. ZYPREXA [Suspect]
     Active Substance: OLANZAPINE
     Dosage: 2.5 MG, QD
     Route: 048
     Dates: start: 20100602, end: 20100608
  6. MAGNESIUM OXIDE. [Concomitant]
     Active Substance: MAGNESIUM OXIDE
     Indication: CONSTIPATION
     Dosage: 0.7 G, BID
     Route: 048
  7. LITHIUM CARBONATE. [Concomitant]
     Active Substance: LITHIUM CARBONATE
     Indication: MANIA
     Dosage: 150 MG, BID
     Route: 048
  8. AKINETON [Concomitant]
     Active Substance: BIPERIDEN HYDROCHLORIDE
     Indication: DYSKINESIA
     Dosage: 0.15 G, BID
     Route: 048

REACTIONS (1)
  - Platelet count decreased [Unknown]

NARRATIVE: CASE EVENT DATE: 20151109
